FAERS Safety Report 6330468-5 (Version None)
Quarter: 2009Q3

REPORT INFORMATION
  Report Type: 
  Country: None (occurrence: None)
  Receive Date: 20090826
  Receipt Date: 20090826
  Transmission Date: 20100115
  Serious: Yes (Hospitalization)
  Sender: FDA-Public Use
  Company Number: None

PATIENT
  Age: 79 Year
  Sex: Male

DRUGS (1)
  1. XOLAIR [Suspect]
     Dosage: 300 MG Q2W SQ
     Route: 058
     Dates: start: 20040617

REACTIONS (1)
  - CEREBROVASCULAR ACCIDENT [None]
